FAERS Safety Report 15918565 (Version 1)
Quarter: 2019Q1

REPORT INFORMATION
  Report Type: Spontaneous
  Country: IT (occurrence: IT)
  Receive Date: 20190205
  Receipt Date: 20190205
  Transmission Date: 20190417
  Serious: Yes (Other)
  Sender: FDA-Public Use
  Company Number: IT-MYLANLABS-2019M1009041

PATIENT
  Age: 79 Year
  Sex: Male
  Weight: 70 kg

DRUGS (1)
  1. CLOPIDOGREL [Suspect]
     Active Substance: CLOPIDOGREL BISULFATE
     Indication: ANTICOAGULANT THERAPY
     Dosage: 75 MICROGRAM/KILOGRAM, QD
     Route: 048
     Dates: start: 20180503, end: 20180613

REACTIONS (1)
  - Therapy non-responder [Recovered/Resolved with Sequelae]

NARRATIVE: CASE EVENT DATE: 20180503
